FAERS Safety Report 8258677-9 (Version None)
Quarter: 2012Q2

REPORT INFORMATION
  Report Type: 
  Country: None (occurrence: None)
  Receive Date: 20120404
  Receipt Date: 20120404
  Transmission Date: 20120825
  Serious: Yes (Life-Threatening, Hospitalization)
  Sender: FDA-Public Use
  Company Number: None

PATIENT
  Age: 38 Year
  Sex: Female
  Weight: 65.77 kg

DRUGS (4)
  1. BIRTH CONTROL PILLS [Concomitant]
  2. CELEXA [Concomitant]
  3. AMPYRA [Suspect]
     Dosage: 10MG
     Route: 048
  4. GILYENA [Concomitant]

REACTIONS (6)
  - HYPERVENTILATION [None]
  - PCO2 INCREASED [None]
  - OXYGEN SATURATION DECREASED [None]
  - UNRESPONSIVE TO STIMULI [None]
  - BRAIN INJURY [None]
  - CONVULSION [None]
